FAERS Safety Report 8809672 (Version 3)
Quarter: 2012Q4

REPORT INFORMATION
  Report Type: 
  Country: US (occurrence: US)
  Receive Date: 20120926
  Receipt Date: 20121212
  Transmission Date: 20130627
  Serious: Yes (Hospitalization, Other)
  Sender: FDA-Public Use
  Company Number: US-ASTRAZENECA-2012SE70893

PATIENT
  Age: 75 Year
  Sex: Female
  Weight: 85.3 kg

DRUGS (16)
  1. NEXIUM [Suspect]
     Indication: GASTROOESOPHAGEAL REFLUX DISEASE
     Route: 048
  2. CRESTOR [Suspect]
     Indication: BLOOD CHOLESTEROL INCREASED
     Route: 048
  3. CRESTOR [Suspect]
     Indication: BLOOD CHOLESTEROL INCREASED
     Route: 048
     Dates: start: 2011
  4. CRESTOR [Suspect]
     Indication: BLOOD CHOLESTEROL INCREASED
     Route: 048
     Dates: start: 2011
  5. METFORMIN [Concomitant]
     Indication: DIABETES MELLITUS
  6. GLIMEPIRIDE [Concomitant]
     Indication: DIABETES MELLITUS
     Route: 048
     Dates: start: 2011
  7. ATENOLOL [Concomitant]
     Indication: HYPERTENSION
  8. COZAAR [Concomitant]
     Indication: HYPERTENSION
     Route: 048
     Dates: start: 2010
  9. B12 [Concomitant]
     Indication: ANAEMIA
     Dosage: DAILY
     Route: 048
     Dates: start: 2012
  10. LASIX [Concomitant]
     Indication: CARDIAC FAILURE CONGESTIVE
     Route: 048
     Dates: start: 2011
  11. PLAVIX [Concomitant]
     Indication: STENT PLACEMENT
  12. ASPIRIN [Concomitant]
     Indication: STENT PLACEMENT
     Route: 048
  13. CALCIUM [Concomitant]
     Indication: OSTEOPOROSIS
     Dosage: DAILY
     Route: 048
     Dates: start: 2008
  14. MVI [Concomitant]
     Dosage: DAILY
     Route: 048
     Dates: start: 2008
  15. FOLIC [Concomitant]
     Indication: ANAEMIA
  16. SLOW FE [Concomitant]
     Indication: ANAEMIA
     Dosage: DAILY
     Route: 048
     Dates: start: 2008

REACTIONS (6)
  - Coronary artery occlusion [Unknown]
  - Cardiac failure congestive [Unknown]
  - Fall [Unknown]
  - Joint injury [Unknown]
  - Hypertension [Unknown]
  - Anaemia [Unknown]
